FAERS Safety Report 8241660-7 (Version None)
Quarter: 2012Q1

REPORT INFORMATION
  Report Type: 
  Country: None (occurrence: None)
  Receive Date: 20120328
  Receipt Date: 20120313
  Transmission Date: 20120608
  Serious: Yes (Other)
  Sender: FDA-Public Use
  Company Number: CHPA2012US005527

PATIENT

DRUGS (1)
  1. TRANSDERM SCOP [Suspect]
     Dosage: UNK, UNK
     Route: 062

REACTIONS (1)
  - WITHDRAWAL SYNDROME [None]
